FAERS Safety Report 23609639 (Version 2)
Quarter: 2024Q1

REPORT INFORMATION
  Report Type: Spontaneous
  Country: IL (occurrence: IL)
  Receive Date: 20240308
  Receipt Date: 20240326
  Transmission Date: 20240410
  Serious: Yes (Hospitalization, Other)
  Sender: FDA-Public Use
  Company Number: IL-SA-SAC20240307001210

PATIENT
  Age: 69 Year
  Sex: Female

DRUGS (6)
  1. DUPIXENT [Suspect]
     Active Substance: DUPILUMAB
     Indication: Dermatitis atopic
     Dosage: 600 MG, 1X
     Dates: start: 202203
  2. DUPIXENT [Suspect]
     Active Substance: DUPILUMAB
     Dosage: 400 MG, QOW
  3. VALSARTAN [Concomitant]
     Active Substance: VALSARTAN
  4. EUTHYROX [Concomitant]
     Active Substance: LEVOTHYROXINE SODIUM
  5. ATORVASTATIN CALCIUM [Concomitant]
     Active Substance: ATORVASTATIN CALCIUM
  6. ELIQUIS [Concomitant]
     Active Substance: APIXABAN

REACTIONS (12)
  - Pruritus [Recovered/Resolved]
  - Extra dose administered [Unknown]
  - Renal impairment [Unknown]
  - Blood uric acid increased [Unknown]
  - Cognitive disorder [Unknown]
  - Aspartate aminotransferase increased [Unknown]
  - Leukocytosis [Unknown]
  - Monocytosis [Unknown]
  - Blood lactate dehydrogenase increased [Unknown]
  - Blood immunoglobulin E increased [Unknown]
  - Blood alkaline phosphatase increased [Unknown]
  - Incorrect dose administered [Unknown]
